FAERS Safety Report 17819702 (Version 1)
Quarter: 2020Q2

REPORT INFORMATION
  Report Type: Report from Study
  Country: CA (occurrence: CA)
  Receive Date: 20200524
  Receipt Date: 20200524
  Transmission Date: 20200714
  Serious: Yes (Other)
  Sender: FDA-Public Use
  Company Number: PHHY2017CA071915

PATIENT
  Age: 71 Year
  Sex: Female

DRUGS (4)
  1. SANDOSTATIN [Suspect]
     Active Substance: OCTREOTIDE ACETATE
     Indication: NEUROENDOCRINE TUMOUR
     Dosage: 200 UG, TID (FOR 7 DOSES)
     Route: 058
     Dates: start: 20131020
  2. SANDOSTATIN LAR DEPOT [Suspect]
     Active Substance: OCTREOTIDE ACETATE
     Indication: NEUROENDOCRINE TUMOUR
     Dosage: 30 MG, QMO
     Route: 030
     Dates: start: 20131028
  3. SYNTHROID [Concomitant]
     Active Substance: LEVOTHYROXINE SODIUM
     Dosage: 0.137 MG, UNK
     Route: 065
     Dates: start: 20180509
  4. SYNTHROID [Concomitant]
     Active Substance: LEVOTHYROXINE SODIUM
     Indication: PRODUCT USED FOR UNKNOWN INDICATION
     Dosage: 0.125 MG, UNK
     Route: 065

REACTIONS (14)
  - Bone pain [Unknown]
  - Thyroid cancer [Recovering/Resolving]
  - Pain [Unknown]
  - Blood pressure systolic increased [Unknown]
  - Back pain [Recovering/Resolving]
  - Breast mass [Unknown]
  - Second primary malignancy [Unknown]
  - Metastasis [Unknown]
  - Fatigue [Unknown]
  - Hepatic cancer [Unknown]
  - Thyroid hormones decreased [Unknown]
  - Pneumonia [Recovered/Resolved]
  - Pulmonary mass [Unknown]
  - Nasopharyngitis [Not Recovered/Not Resolved]

NARRATIVE: CASE EVENT DATE: 2013
